FAERS Safety Report 7577035-3 (Version None)
Quarter: 2011Q2

REPORT INFORMATION
  Report Type: 
  Country: None (occurrence: None)
  Receive Date: 20110628
  Receipt Date: 20110623
  Transmission Date: 20111010
  Serious: No
  Sender: FDA-Public Use
  Company Number: US-PFIZER INC-2011109641

PATIENT
  Sex: Female
  Weight: 80 kg

DRUGS (6)
  1. EFFEXOR [Suspect]
     Indication: BIPOLAR DISORDER
     Dosage: UNK
     Dates: start: 19950101, end: 19960101
  2. EFFEXOR XR [Suspect]
     Indication: BIPOLAR DISORDER
  3. EFFEXOR [Suspect]
     Indication: WEIGHT CONTROL
  4. EFFEXOR [Suspect]
     Indication: DEPRESSION
  5. EFFEXOR XR [Suspect]
     Indication: DEPRESSION
     Dosage: 300 MG, 1X/DAY
     Route: 048
     Dates: start: 19960101, end: 20110513
  6. SYNTHROID [Concomitant]
     Indication: HYPERTHYROIDISM
     Dosage: 125 UG, DAILY
     Route: 048

REACTIONS (3)
  - DRY MOUTH [None]
  - NAUSEA [None]
  - WEIGHT INCREASED [None]
